FAERS Safety Report 26161489 (Version 3)
Quarter: 2025Q4

REPORT INFORMATION
  Report Type: Spontaneous
  Country: EU (occurrence: EU)
  Receive Date: 20251216
  Receipt Date: 20251222
  Transmission Date: 20260117
  Serious: Yes (Death, Life-Threatening, Other)
  Sender: NOVARTIS
  Company Number: EU-PFIZER INC-PV202500142711

PATIENT
  Age: 63 Year
  Sex: Male

DRUGS (3)
  1. MIDOSTAURIN [Suspect]
     Active Substance: MIDOSTAURIN
     Indication: Acute myeloid leukaemia
     Dosage: 100 MG, QD (50 MG, 2X/DAY)
     Route: 065
  2. CYTARABINE [Suspect]
     Active Substance: CYTARABINE
     Indication: Acute myeloid leukaemia
     Dosage: ON DAYS +1, +3, AND +5
     Route: 065
  3. CYTARABINE [Suspect]
     Active Substance: CYTARABINE
     Indication: Acute myeloid leukaemia

REACTIONS (7)
  - Haemorrhagic stroke [Fatal]
  - Acute myeloid leukaemia [Unknown]
  - Malignant neoplasm progression [Unknown]
  - Bone marrow failure [Unknown]
  - Haemorrhagic diathesis [Unknown]
  - Pancytopenia [Unknown]
  - Vitreous haemorrhage [Unknown]
